FAERS Safety Report 10712021 (Version 1)
Quarter: 2015Q1

REPORT INFORMATION
  Report Type: Spontaneous
  Country: US (occurrence: US)
  Receive Date: 20150114
  Receipt Date: 20150114
  Transmission Date: 20150721
  Serious: No
  Sender: FDA-Public Use
  Company Number: US-ALLERGAN-1405175US

PATIENT
  Age: 29 Year
  Sex: Female

DRUGS (2)
  1. ACZONE [Suspect]
     Active Substance: DAPSONE
     Indication: ACNE
     Dosage: UNK, SINGLE
     Route: 061
     Dates: start: 20140313, end: 20140313
  2. CLINDAMYCIN [Concomitant]
     Active Substance: CLINDAMYCIN\CLINDAMYCIN PHOSPHATE
     Indication: ACNE
     Dosage: UNK
     Route: 048
     Dates: start: 20140313

REACTIONS (4)
  - Erythema [Recovered/Resolved]
  - Acne [Not Recovered/Not Resolved]
  - Acne [Recovering/Resolving]
  - Pruritus [Recovered/Resolved]

NARRATIVE: CASE EVENT DATE: 20140313
